FAERS Safety Report 9556538 (Version 1)
Quarter: 2013Q3

REPORT INFORMATION
  Report Type: Spontaneous
  Country: US (occurrence: None)
  Receive Date: 20130909
  Receipt Date: 20130909
  Transmission Date: 20140515
  Serious: Yes (Other)
  Sender: FDA-Public Use
  Company Number: 375378

PATIENT
  Age: 50 Year
  Sex: Male
  Weight: 106.1 kg

DRUGS (11)
  1. VICTOZA [Suspect]
     Indication: TYPE 2 DIABETES MELLITUS
     Route: 058
     Dates: start: 20120203, end: 20120511
  2. LANTUS [Concomitant]
  3. LOSARTAN [Concomitant]
  4. METFORMIN [Concomitant]
  5. LYRICA [Concomitant]
  6. CRESTOR [Concomitant]
  7. ANDROGEL [Concomitant]
  8. TESTOSTERONE [Concomitant]
  9. VARDENAFIL [Concomitant]
  10. ZOSTER IMMUNOGLOBULIN [Concomitant]
  11. NOVO TWIST [Concomitant]

REACTIONS (1)
  - Pancreatitis [None]
